FAERS Safety Report 8890566 (Version 2)
Quarter: 2012Q4

REPORT INFORMATION
  Report Type: 
  Country: CZ (occurrence: CZ)
  Receive Date: 20121106
  Receipt Date: 20121211
  Transmission Date: 20130627
  Serious: Yes (Hospitalization)
  Sender: FDA-Public Use
  Company Number: CZ-WATSON-2012-18687

PATIENT
  Age: 79 Year
  Sex: Female

DRUGS (18)
  1. AMIODARONE HYDROCHLORIDE (UNKNOWN) [Suspect]
     Indication: ATRIAL FIBRILLATION
     Dosage: 200 mg 5X per week
     Route: 042
  2. AMIODARONE HYDROCHLORIDE (UNKNOWN) [Suspect]
     Dosage: 200 mg 5X per week
     Route: 048
  3. ATORVASTATIN (UNKNOWN) [Suspect]
     Indication: PRODUCT USED FOR UNKNOWN INDICATION
     Dosage: UNK, unknown
     Route: 065
  4. DOXYCYCLINE (WATSON LABORATORIES) [Suspect]
     Indication: RESPIRATORY TRACT INFECTION
     Dosage: UNK, unknown
     Route: 065
  5. ACETYLSALICYLIC ACID [Concomitant]
     Indication: PRODUCT USED FOR UNKNOWN INDICATION
  6. CARVEDILOL [Concomitant]
     Indication: CARDIAC FAILURE
  7. RAMIPRIL [Concomitant]
     Indication: CARDIAC FAILURE
  8. FUROSEMIDE [Concomitant]
     Indication: CARDIAC FAILURE
  9. TRIMETAZIDINE [Concomitant]
     Indication: CARDIAC FAILURE
  10. SPIRONOLACTON [Concomitant]
     Indication: CARDIAC FAILURE
  11. LOSEPRAZOL [Concomitant]
     Indication: PRODUCT USED FOR UNKNOWN INDICATION
  12. DIGOXIN [Concomitant]
     Indication: CARDIAC FAILURE
  13. MAGNESIUM LACTATE [Concomitant]
     Indication: PRODUCT USED FOR UNKNOWN INDICATION
  14. LEVOTHYROXINE [Concomitant]
     Indication: HYPOTHYROIDISM
  15. ALLOPURINOL [Concomitant]
     Indication: HYPERURICAEMIA
  16. GLIMEPIRIDE [Concomitant]
     Indication: TYPE 2 DIABETES MELLITUS
  17. CLONAZEPAM [Concomitant]
     Indication: PRODUCT USED FOR UNKNOWN INDICATION
  18. OXYCODONE [Concomitant]
     Indication: PRODUCT USED FOR UNKNOWN INDICATION

REACTIONS (1)
  - Hepatic function abnormal [Recovered/Resolved]
